FAERS Safety Report 13813122 (Version 1)
Quarter: 2017Q3

REPORT INFORMATION
  Report Type: Spontaneous
  Country: IT (occurrence: IT)
  Receive Date: 20170731
  Receipt Date: 20170731
  Transmission Date: 20171127
  Serious: Yes (Other)
  Sender: FDA-Public Use
  Company Number: IT-ROCHE-1915816

PATIENT
  Age: 23 Year
  Sex: Male

DRUGS (3)
  1. BEVACIZUMAB. [Suspect]
     Active Substance: BEVACIZUMAB
     Indication: DESMOPLASTIC SMALL ROUND CELL TUMOUR
     Dosage: EVERY 2 WEEKS
     Route: 065
     Dates: start: 200410
  2. CETUXIMAB. [Suspect]
     Active Substance: CETUXIMAB
     Indication: DESMOPLASTIC SMALL ROUND CELL TUMOUR
     Dosage: LOADING DOSE
     Route: 065
     Dates: start: 200410
  3. CETUXIMAB. [Suspect]
     Active Substance: CETUXIMAB
     Route: 065

REACTIONS (1)
  - Dermatitis acneiform [Unknown]
